FAERS Safety Report 6554127-9 (Version None)
Quarter: 2010Q1

REPORT INFORMATION
  Report Type: 
  Country: None (occurrence: None)
  Receive Date: 20100127
  Receipt Date: 20100122
  Transmission Date: 20100710
  Serious: Yes (Other)
  Sender: FDA-Public Use
  Company Number: IT-ROCHE-675244

PATIENT
  Sex: Male
  Weight: 80 kg

DRUGS (10)
  1. TOCILIZUMAB [Suspect]
     Indication: RHEUMATOID ARTHRITIS
     Dosage: FORM: INFUSION, DOSE : 4 MG/KG
     Route: 042
     Dates: start: 20081211
  2. TOCILIZUMAB [Suspect]
     Route: 042
     Dates: start: 20091113
  3. TOCILIZUMAB [Suspect]
     Route: 042
     Dates: start: 20091013
  4. TOCILIZUMAB [Suspect]
     Route: 042
     Dates: start: 20090922
  5. BLINDED TOCILIZUMAB [Suspect]
     Indication: RHEUMATOID ARTHRITIS
     Dosage: DOSE BLINDED, FORM: INFUSION
     Route: 042
     Dates: start: 20061211, end: 20081211
  6. PREDNISONE [Concomitant]
     Dates: start: 20060322
  7. ACID FOLIC [Concomitant]
     Dates: start: 19991102
  8. IBUPROFEN [Concomitant]
     Dates: start: 20060707
  9. METHOTREXATE [Concomitant]
     Dates: start: 20060708
  10. OMEPRAZOLE [Concomitant]
     Dates: start: 20051222

REACTIONS (1)
  - BLADDER CANCER [None]
